FAERS Safety Report 7772864-5 (Version None)
Quarter: 2011Q3

REPORT INFORMATION
  Report Type: 
  Country: None (occurrence: None)
  Receive Date: 20110922
  Receipt Date: 20101004
  Transmission Date: 20111222
  Serious: Yes (Hospitalization)
  Sender: FDA-Public Use
  Company Number: US-ASTRAZENECA-2010SE47030

PATIENT
  Sex: Male

DRUGS (13)
  1. NEXIUM [Concomitant]
     Indication: ABDOMINAL DISCOMFORT
  2. LANTUS [Concomitant]
     Indication: DIABETES MELLITUS
  3. TOPAMAX [Concomitant]
  4. SEROQUEL XR [Suspect]
     Indication: SCHIZOPHRENIA
     Route: 048
     Dates: start: 20090101, end: 20100901
  5. LISINOPRIL [Concomitant]
     Indication: BLOOD PRESSURE MANAGEMENT
  6. ZOLOFT [Concomitant]
  7. GLYBURIDE [Concomitant]
     Indication: DIABETES MELLITUS
  8. LYRICA [Concomitant]
  9. SEROQUEL XR [Suspect]
     Indication: BIPOLAR I DISORDER
     Route: 048
     Dates: start: 20090101, end: 20100901
  10. AMITRIPTYLINE HCL [Concomitant]
  11. METFORMIN [Concomitant]
  12. CYMBALTA [Concomitant]
  13. FENOFIBRATE [Concomitant]

REACTIONS (6)
  - BLOOD GLUCOSE INCREASED [None]
  - ABDOMINAL DISTENSION [None]
  - BLOOD POTASSIUM DECREASED [None]
  - DEHYDRATION [None]
  - DIZZINESS [None]
  - ABDOMINAL PAIN UPPER [None]
